FAERS Safety Report 14080686 (Version 2)
Quarter: 2018Q2

REPORT INFORMATION
  Report Type: Spontaneous
  Country: US (occurrence: US)
  Receive Date: 20171012
  Receipt Date: 20180410
  Transmission Date: 20180711
  Serious: No
  Sender: FDA-Public Use
  Company Number: US-MYLANLABS-2017M1039289

PATIENT
  Age: 78 Year
  Sex: Male
  Weight: 84 kg

DRUGS (3)
  1. BUSPIRONE HYDROCHLORIDE TABLETS USP [Suspect]
     Active Substance: BUSPIRONE HYDROCHLORIDE
     Dosage: 7.5 MG, QD
  2. BUSPIRONE HYDROCHLORIDE TABLETS USP [Suspect]
     Active Substance: BUSPIRONE HYDROCHLORIDE
     Dosage: 15 MG, QD
     Dates: start: 2017
  3. BUSPIRONE HYDROCHLORIDE TABLETS USP [Suspect]
     Active Substance: BUSPIRONE HYDROCHLORIDE
     Indication: ANXIETY
     Dosage: 15 MG, Q8H
     Dates: start: 20170117, end: 20170312

REACTIONS (1)
  - Drug ineffective [Recovered/Resolved]

NARRATIVE: CASE EVENT DATE: 20170117
